FAERS Safety Report 8755863 (Version 3)
Quarter: 2013Q4

REPORT INFORMATION
  Report Type: Spontaneous
  Country: US (occurrence: US)
  Receive Date: 20120827
  Receipt Date: 20131108
  Transmission Date: 20140711
  Serious: Yes (Hospitalization, Disabling, Other)
  Sender: FDA-Public Use
  Company Number: US-009507513-2012SP000252

PATIENT
  Age: 22 Year
  Sex: Female
  Weight: 113.4 kg

DRUGS (3)
  1. NUVARING [Suspect]
     Indication: CONTRACEPTION
     Dates: start: 2007, end: 200901
  2. NUVARING [Suspect]
     Indication: OVARIAN CYST
     Dates: start: 2004, end: 2006
  3. NUVARING [Suspect]
     Indication: MENSTRUAL CYCLE MANAGEMENT

REACTIONS (39)
  - Pyelonephritis [Unknown]
  - Cholecystitis [Not Recovered/Not Resolved]
  - Pulmonary embolism [Recovering/Resolving]
  - Oedema peripheral [Unknown]
  - Gastrointestinal disorder [Unknown]
  - Asthma [Unknown]
  - Crohn^s disease [Unknown]
  - Smear cervix abnormal [Recovered/Resolved]
  - Antinuclear antibody [Unknown]
  - Clostridium difficile infection [Unknown]
  - Colitis [Unknown]
  - Atypical pneumonia [Unknown]
  - Infectious mononucleosis [Unknown]
  - Presyncope [Unknown]
  - Fall [Unknown]
  - Clostridium difficile colitis [Unknown]
  - Sciatica [Unknown]
  - Peptic ulcer [Unknown]
  - Amenorrhoea [Not Recovered/Not Resolved]
  - Hiatus hernia [Not Recovered/Not Resolved]
  - Oesophageal ulcer [Recovered/Resolved]
  - Gastric disorder [Unknown]
  - Gastritis erosive [Unknown]
  - Intestinal polyp [Unknown]
  - Haemorrhoids [Unknown]
  - Cholecystectomy [Unknown]
  - Dysphagia [Unknown]
  - Lymphadenopathy [Recovering/Resolving]
  - Granulomatous liver disease [Unknown]
  - Gastrooesophageal reflux disease [Not Recovered/Not Resolved]
  - Chest pain [Unknown]
  - Abdominal pain [Unknown]
  - Urinary tract infection [Unknown]
  - Renal failure [Unknown]
  - Staphylococcal infection [Unknown]
  - Drug hypersensitivity [Unknown]
  - Local swelling [Unknown]
  - Pain in extremity [Unknown]
  - Varicose vein [Unknown]
